FAERS Safety Report 7546431-2 (Version None)
Quarter: 2011Q2

REPORT INFORMATION
  Report Type: 
  Country: None (occurrence: None)
  Receive Date: 20110614
  Receipt Date: 20110602
  Transmission Date: 20111010
  Serious: Yes (Death)
  Sender: FDA-Public Use
  Company Number: US-ENDO PHARMACEUTICALS INC.-SPLN20110051

PATIENT
  Sex: Male
  Weight: 41.4 kg

DRUGS (4)
  1. TOPAMAX [Concomitant]
     Indication: CONVULSION
     Dosage: UNK
     Route: 065
  2. KEPPRA [Concomitant]
     Indication: CONVULSION
     Route: 065
  3. SUPPRELIN LA [Suspect]
     Indication: PRECOCIOUS PUBERTY
     Route: 058
     Dates: start: 20100507
  4. LAMICTAL [Concomitant]
     Indication: CONVULSION
     Route: 065

REACTIONS (1)
  - CONVULSION [None]
